FAERS Safety Report 12800527 (Version 1)
Quarter: 2016Q3

REPORT INFORMATION
  Report Type: Report from Study
  Country: CH (occurrence: CH)
  Receive Date: 20160930
  Receipt Date: 20160930
  Transmission Date: 20161109
  Serious: Yes (Death)
  Sender: FDA-Public Use
  Company Number: CH-ABBVIE-16K-151-1742643-00

PATIENT
  Age: 43 Year
  Sex: Male

DRUGS (1)
  1. HUMIRA [Suspect]
     Active Substance: ADALIMUMAB
     Indication: CROHN^S DISEASE
     Route: 058
     Dates: start: 201306, end: 201609

REACTIONS (1)
  - Death [Fatal]

NARRATIVE: CASE EVENT DATE: 201609
